FAERS Safety Report 15744246 (Version 1)
Quarter: 2018Q4

REPORT INFORMATION
  Report Type: Spontaneous
  Country: CA (occurrence: CA)
  Receive Date: 20181220
  Receipt Date: 20181220
  Transmission Date: 20190205
  Serious: Yes (Hospitalization)
  Sender: FDA-Public Use
  Company Number: CA-JNJFOC-20180211406

PATIENT
  Age: 8 Year
  Sex: Female

DRUGS (6)
  1. MESALAMINE. [Suspect]
     Active Substance: MESALAMINE
     Indication: COLITIS
     Route: 048
  2. MESALAMINE. [Suspect]
     Active Substance: MESALAMINE
     Indication: COLITIS
     Route: 054
  3. SULFASALAZINE. [Suspect]
     Active Substance: SULFASALAZINE
     Indication: COLITIS
     Route: 065
  4. MERCAPTOPURINE. [Suspect]
     Active Substance: MERCAPTOPURINE
     Indication: POUCHITIS
     Route: 065
  5. IMODIUM [Suspect]
     Active Substance: LOPERAMIDE HYDROCHLORIDE
     Indication: COLITIS
     Route: 065
  6. AZATHIOPRINE. [Suspect]
     Active Substance: AZATHIOPRINE
     Indication: COLITIS
     Route: 065

REACTIONS (2)
  - Pouchitis [Recovered/Resolved]
  - Condition aggravated [Recovered/Resolved]
